FAERS Safety Report 22290884 (Version 2)
Quarter: 2023Q4

REPORT INFORMATION
  Report Type: Spontaneous
  Country: US (occurrence: US)
  Receive Date: 20230506
  Receipt Date: 20231001
  Transmission Date: 20240109
  Serious: Yes (Hospitalization)
  Sender: FDA-Public Use
  Company Number: US-UNITED THERAPEUTICS-UNT-2023-011514

PATIENT
  Sex: Male
  Weight: 76.19 kg

DRUGS (4)
  1. REMODULIN [Suspect]
     Active Substance: TREPROSTINIL
     Indication: Pulmonary arterial hypertension
     Dosage: 0.02725 ?G/KG, CONTINUING (SELF FILLED WITH 2.3 ML PER CASSETTE, RATE OF 25 MCL PER HOUR)
     Route: 058
     Dates: start: 2023
  2. REMODULIN [Suspect]
     Active Substance: TREPROSTINIL
     Dosage: 0.0225 ?G/KG, CONTINUING (SELF FILLED WITH 2.3 ML PER CASSETTE, PUMP RATE OF 25 MCL PER HOUR)
     Route: 058
     Dates: start: 2023
  3. REMODULIN [Suspect]
     Active Substance: TREPROSTINIL
     Dosage: UNK, CONTINUING (INCREASED DOSE)
     Route: 058
     Dates: start: 202304
  4. REMODULIN [Suspect]
     Active Substance: TREPROSTINIL
     Dosage: UNK, CONTINUING
     Route: 058
     Dates: start: 20230308

REACTIONS (3)
  - Dyspnoea [Unknown]
  - Asthenia [Unknown]
  - Illness [Unknown]

NARRATIVE: CASE EVENT DATE: 20230101
